FAERS Safety Report 13147911 (Version 1)
Quarter: 2017Q1

REPORT INFORMATION
  Report Type: Spontaneous
  Country: US (occurrence: US)
  Receive Date: 20170125
  Receipt Date: 20170125
  Transmission Date: 20170428
  Serious: No
  Sender: FDA-Public Use
  Company Number: US-SUN PHARMACEUTICAL INDUSTRIES LTD-2016US-127223

PATIENT
  Age: 2 Year
  Sex: Male

DRUGS (1)
  1. ACETAMINOPHEN. [Suspect]
     Active Substance: ACETAMINOPHEN
     Indication: MASTOIDITIS
     Dosage: 50-75MG/KG DAILY DOSE (GIVEN 4-6 DOSES/DAY FOR UP TO 2 WEEKS)
     Route: 065

REACTIONS (1)
  - Transaminases abnormal [Unknown]
